FAERS Safety Report 4891313-8 (Version None)
Quarter: 2005Q4

REPORT INFORMATION
  Report Type: 
  Country: None (occurrence: None)
  Receive Date: 20051220
  Receipt Date: 20050822
  Transmission Date: 20060501
  Serious: Yes (Other)
  Sender: FDA-Public Use
  Company Number: 415378

PATIENT
  Age: 75 Year
  Sex: Female

DRUGS (3)
  1. BONIVA [Suspect]
     Indication: OSTEOPOROSIS
     Dosage: 150 MG ORAL
     Route: 048
     Dates: start: 20050708, end: 20050808
  2. CALCIUM NOS (CALCIUM) [Concomitant]
  3. VITAMIN D NOS (VITAMIN D NOS) [Concomitant]

REACTIONS (2)
  - COUGH [None]
  - GASTROOESOPHAGEAL REFLUX DISEASE [None]
